FAERS Safety Report 21299013 (Version 1)
Quarter: 2022Q3

REPORT INFORMATION
  Report Type: Spontaneous
  Country: US (occurrence: None)
  Receive Date: 20220905
  Receipt Date: 20220905
  Transmission Date: 20221027
  Serious: Yes (Disabling)
  Sender: FDA-Public Use
  Company Number: None

PATIENT
  Age: 63 Year
  Sex: Male
  Weight: 63 kg

DRUGS (11)
  1. REPATHA [Suspect]
     Active Substance: EVOLOCUMAB
     Indication: Blood cholesterol increased
     Dates: start: 20220101, end: 20220806
  2. PLAVIX [Concomitant]
     Active Substance: CLOPIDOGREL BISULFATE
  3. AMLODIPINE [Concomitant]
     Active Substance: AMLODIPINE BESYLATE
  4. BYSTOLIC [Concomitant]
     Active Substance: NEBIVOLOL HYDROCHLORIDE
  5. OMEPRAZOLE [Concomitant]
     Active Substance: OMEPRAZOLE
  6. VITAMINS [Concomitant]
     Active Substance: VITAMINS
  7. FISH OIL [Concomitant]
     Active Substance: FISH OIL
  8. FLAXSEED [Concomitant]
     Active Substance: FLAX SEED
  9. VITAMIN D [Concomitant]
     Active Substance: VITAMIN D NOS
  10. Bergamot [Concomitant]
  11. MINERALS [Concomitant]
     Active Substance: MINERALS

REACTIONS (3)
  - Myalgia [None]
  - Feeling abnormal [None]
  - Drug intolerance [None]

NARRATIVE: CASE EVENT DATE: 20220601
